FAERS Safety Report 7331734-7 (Version None)
Quarter: 2011Q1

REPORT INFORMATION
  Report Type: 
  Country: None (occurrence: None)
  Receive Date: 20110304
  Receipt Date: 20110304
  Transmission Date: 20110831
  Serious: Yes (Hospitalization)
  Sender: FDA-Public Use
  Company Number: PHHO2009NL14060

PATIENT
  Sex: Male

DRUGS (4)
  1. RAD 666 [Suspect]
     Dosage: UNK
     Dates: start: 20091204
  2. RAD 666 [Suspect]
     Indication: CARCINOID TUMOUR
     Dosage: UNK
     Dates: start: 20080516, end: 20091112
  3. SANDOSTATIN LAR [Concomitant]
     Indication: CARCINOID TUMOUR
  4. PLACEBO [Suspect]
     Indication: CARCINOID TUMOUR
     Dosage: PLACEBO
     Route: 048
     Dates: start: 20071103

REACTIONS (1)
  - HAEMATURIA [None]
